FAERS Safety Report 20303011 (Version 1)
Quarter: 2022Q1

REPORT INFORMATION
  Report Type: Spontaneous
  Country: IT (occurrence: IT)
  Receive Date: 20220106
  Receipt Date: 20220106
  Transmission Date: 20220423
  Serious: Yes (Life-Threatening, Other)
  Sender: FDA-Public Use
  Company Number: IT-MINISAL02-822887

PATIENT
  Age: 54 Year
  Sex: Male
  Weight: 76 kg

DRUGS (1)
  1. SILODOSIN [Suspect]
     Active Substance: SILODOSIN
     Indication: Urinary retention
     Dosage: 8 MILLIGRAM, ONCE A DAY
     Route: 048
     Dates: start: 20201104

REACTIONS (7)
  - Vertigo [Unknown]
  - Asthenia [Unknown]
  - Amnesia [Unknown]
  - Sexual dysfunction [Unknown]
  - Vision blurred [Unknown]
  - Arrhythmia [Unknown]
  - Deafness unilateral [Unknown]

NARRATIVE: CASE EVENT DATE: 20201104
